FAERS Safety Report 23713727 (Version 1)
Quarter: 2024Q2

REPORT INFORMATION
  Report Type: Spontaneous
  Country: US (occurrence: US)
  Receive Date: 20240405
  Receipt Date: 20240405
  Transmission Date: 20240716
  Serious: No
  Sender: FDA-Public Use
  Company Number: US-PERRIGO-23US006733

PATIENT

DRUGS (2)
  1. DEXTROMETHORPHAN HYDROBROMIDE\GUAIFENESIN [Suspect]
     Active Substance: DEXTROMETHORPHAN HYDROBROMIDE\GUAIFENESIN
     Indication: Cough
     Dosage: 3 TABLETS, SINGLE
     Route: 048
     Dates: start: 20230601, end: 20230601
  2. DEXTROMETHORPHAN HYDROBROMIDE\GUAIFENESIN [Suspect]
     Active Substance: DEXTROMETHORPHAN HYDROBROMIDE\GUAIFENESIN
     Dosage: 2 TABLETS, ONCE IN THE MORNING
     Route: 048
     Dates: start: 20230602, end: 20230602

REACTIONS (4)
  - Somnolence [Unknown]
  - Limb discomfort [Unknown]
  - Head discomfort [Unknown]
  - Overdose [Unknown]

NARRATIVE: CASE EVENT DATE: 20230601
